FAERS Safety Report 14337842 (Version 8)
Quarter: 2023Q1

REPORT INFORMATION
  Report Type: Report from Study
  Country: GB (occurrence: GB)
  Receive Date: 20171229
  Receipt Date: 20230203
  Transmission Date: 20230417
  Serious: Yes (Hospitalization, Other)
  Sender: FDA-Public Use
  Company Number: GB-CELGENE-GBR-2016031205

PATIENT
  Age: 73 Year
  Sex: Female
  Weight: 72 kg

DRUGS (19)
  1. DEXAMETHASONE [Suspect]
     Active Substance: DEXAMETHASONE
     Indication: Plasma cell myeloma
     Route: 065
     Dates: start: 20160315
  2. DEXAMETHASONE [Suspect]
     Active Substance: DEXAMETHASONE
     Indication: Plasma cell myeloma
     Dosage: 40 MG
     Route: 048
     Dates: start: 20160223, end: 20160302
  3. DEXAMETHASONE [Suspect]
     Active Substance: DEXAMETHASONE
     Dosage: 40 MILLIGRAM, QW
     Route: 048
     Dates: start: 20160223, end: 20160315
  4. DEXAMETHASONE [Suspect]
     Active Substance: DEXAMETHASONE
     Dosage: 5.7143 MG
     Route: 065
     Dates: start: 20160315
  5. ALLOPURINOL [Suspect]
     Active Substance: ALLOPURINOL
     Indication: Prophylaxis
     Dosage: 200 MILLIGRAM DAILY; 200MG ORAL DAILY FOR 28 DAYS
     Route: 048
     Dates: start: 20160223
  6. ALLOPURINOL [Suspect]
     Active Substance: ALLOPURINOL
     Indication: Plasma cell myeloma
     Dosage: 40 MG
     Route: 048
     Dates: start: 20160315
  7. ALLOPURINOL [Suspect]
     Active Substance: ALLOPURINOL
     Dosage: 3 MG
     Route: 048
     Dates: start: 20160223, end: 20160228
  8. ALLOPURINOL [Suspect]
     Active Substance: ALLOPURINOL
     Dosage: 40 MG
     Route: 048
     Dates: start: 20160223
  9. ALLOPURINOL [Suspect]
     Active Substance: ALLOPURINOL
     Dosage: 3 MG
     Route: 048
     Dates: start: 20160223, end: 20160321
  10. POMALIDOMIDE [Suspect]
     Active Substance: POMALIDOMIDE
     Indication: Plasma cell myeloma
     Route: 048
     Dates: start: 20160223, end: 20160321
  11. POMALIDOMIDE [Suspect]
     Active Substance: POMALIDOMIDE
     Indication: Plasma cell myeloma
     Route: 048
     Dates: start: 20160223, end: 20160228
  12. POMALIDOMIDE [Suspect]
     Active Substance: POMALIDOMIDE
     Dosage: 3 MG
     Route: 048
     Dates: start: 20160223, end: 20160315
  13. POMALIDOMIDE [Suspect]
     Active Substance: POMALIDOMIDE
     Dosage: NO.OF UNITS IN THE INTERVAL: 28 DAYS, 3 MILLIGRAM, ALSO RECEIVED ON 28-FEB-2016; ALSO RECEIVED 4 MG,
     Route: 048
     Dates: start: 20160223, end: 20160321
  14. POMALIDOMIDE [Suspect]
     Active Substance: POMALIDOMIDE
     Dosage: 84 MILLIGRAM, 28 DAYS (3 MILLIGRAM), DURATION-5 DAYS
     Route: 048
     Dates: start: 20160223, end: 20160228
  15. POMALIDOMIDE [Suspect]
     Active Substance: POMALIDOMIDE
     Dosage: 84 MILLIGRAM, 28 DAYS (3 MILLIGRAM), DURATION- 21 DAYS
     Route: 048
     Dates: start: 20160223, end: 20160315
  16. POMALIDOMIDE [Suspect]
     Active Substance: POMALIDOMIDE
     Dosage: DAILY FOR 21 DAYS
     Route: 048
     Dates: start: 20160305, end: 20160315
  17. POMALIDOMIDE [Suspect]
     Active Substance: POMALIDOMIDE
     Dosage: 3.0769 MILLIGRAM DAILY; DAILY FOR 21 DAYS
     Route: 048
     Dates: start: 20160223, end: 20160301
  18. OMEPRAZOLE [Concomitant]
     Active Substance: OMEPRAZOLE
     Indication: Product used for unknown indication
     Dosage: 20 MILLIGRAM DAILY; 20MG DAILY FOR 28 DAYS
     Route: 048
     Dates: start: 20160223
  19. DALTEPARIN [Concomitant]
     Active Substance: DALTEPARIN
     Indication: Anticoagulant therapy
     Dosage: 5000 INTERNATIONAL UNIT
     Route: 065
     Dates: start: 20160223, end: 20160302

REACTIONS (3)
  - Rash [Recovered/Resolved]
  - Acute kidney injury [Recovered/Resolved]
  - Thrombocytopenia [Recovered/Resolved]

NARRATIVE: CASE EVENT DATE: 20160301
